FAERS Safety Report 9412860 (Version 1)
Quarter: 2013Q3

REPORT INFORMATION
  Report Type: Spontaneous
  Country: NL (occurrence: NL)
  Receive Date: 20130722
  Receipt Date: 20130722
  Transmission Date: 20140515
  Serious: Yes (Congenital Anomaly)
  Sender: FDA-Public Use
  Company Number: PHHY2013NL076004

PATIENT
  Sex: 0

DRUGS (1)
  1. OLANZAPINE SANDOZ [Suspect]
     Indication: DEPRESSION
     Dosage: 2.5 MG, UNK
     Route: 064
     Dates: start: 20040101

REACTIONS (1)
  - Gastrointestinal malformation [Not Recovered/Not Resolved]
